FAERS Safety Report 16760732 (Version 2)
Quarter: 2019Q3

REPORT INFORMATION
  Report Type: Spontaneous
  Country: DE (occurrence: DE)
  Receive Date: 20190830
  Receipt Date: 20190830
  Transmission Date: 20191005
  Serious: Yes (Other)
  Sender: FDA-Public Use
  Company Number: PHHY2019DE200352

PATIENT
  Sex: Male

DRUGS (1)
  1. CICLORAL HEXAL [Suspect]
     Active Substance: CYCLOSPORINE
     Indication: SYSTEMIC LUPUS ERYTHEMATOSUS
     Dosage: 100 MG, BID (75 MG IN THE MORNING AND 25 MG IN THE EVENING)
     Route: 065
     Dates: start: 2007

REACTIONS (3)
  - Glomerulonephritis [Unknown]
  - Renal neoplasm [Unknown]
  - Product use in unapproved indication [Unknown]
